FAERS Safety Report 11132645 (Version 7)
Quarter: 2017Q1

REPORT INFORMATION
  Report Type: Report from Study
  Country: DE (occurrence: DE)
  Receive Date: 20150522
  Receipt Date: 20170329
  Transmission Date: 20170428
  Serious: Yes (Hospitalization, Other)
  Sender: FDA-Public Use
  Company Number: PHHO2015DE007259

PATIENT
  Age: 25 Year
  Sex: Male
  Weight: 65 kg

DRUGS (70)
  1. CERTICAN [Suspect]
     Active Substance: EVEROLIMUS
     Dosage: 12 MG, QD (6-0-6)
     Route: 048
     Dates: start: 20150428, end: 20150501
  2. CERTICAN [Suspect]
     Active Substance: EVEROLIMUS
     Dosage: 8 MG, QD (8-0-0)
     Route: 048
     Dates: start: 20150511, end: 20150511
  3. CERTICAN [Suspect]
     Active Substance: EVEROLIMUS
     Dosage: UNK
     Route: 048
     Dates: start: 20150514, end: 20150514
  4. CERTICAN [Suspect]
     Active Substance: EVEROLIMUS
     Dosage: 2.5 MG, BID
     Route: 048
     Dates: start: 20150606
  5. TACROLIMUS. [Suspect]
     Active Substance: TACROLIMUS
     Dosage: 24 MG, QD (12-0-12)
     Route: 048
     Dates: start: 20150430, end: 20150501
  6. TACROLIMUS. [Suspect]
     Active Substance: TACROLIMUS
     Dosage: 7 MG, BID (4-0-3)
     Route: 048
     Dates: start: 20150514, end: 20150514
  7. TACROLIMUS. [Suspect]
     Active Substance: TACROLIMUS
     Dosage: 11 MG, QD (6-0-5)
     Route: 048
     Dates: start: 20150521, end: 20150521
  8. PREDNISOLON [Concomitant]
     Active Substance: PREDNISOLONE
     Dosage: 30 MG, QD
     Route: 065
     Dates: start: 20150502, end: 20150504
  9. PREDNISOLON [Concomitant]
     Active Substance: PREDNISOLONE
     Dosage: 20 MG, QD
     Route: 065
     Dates: start: 20150505, end: 20150507
  10. CERTICAN [Suspect]
     Active Substance: EVEROLIMUS
     Indication: RENAL TRANSPLANT
     Dosage: 3 MG, QD (1.5-0-1.5)
     Route: 048
     Dates: start: 20150423, end: 20150423
  11. TACROLIMUS. [Suspect]
     Active Substance: TACROLIMUS
     Dosage: 20 MG, QD (8-0-12)
     Route: 048
     Dates: start: 20150429, end: 20150429
  12. TACROLIMUS. [Suspect]
     Active Substance: TACROLIMUS
     Dosage: 14 MG, QD (7-0-7)
     Route: 048
     Dates: start: 20150507, end: 20150510
  13. TACROLIMUS. [Suspect]
     Active Substance: TACROLIMUS
     Dosage: 7 MG, QD (7-0-0)
     Route: 048
     Dates: start: 20150511, end: 20150511
  14. URBASON SOLUBILE FORTE [Concomitant]
     Dosage: 250 MG, QD
     Route: 065
     Dates: start: 20150423, end: 20150423
  15. PREDNISOLON [Concomitant]
     Active Substance: PREDNISOLONE
     Indication: RENAL TRANSPLANT
     Dosage: 50 MG, QD
     Route: 065
     Dates: start: 20150425, end: 20150427
  16. PREDNISOLON [Concomitant]
     Active Substance: PREDNISOLONE
     Dosage: 10 MG, QD
     Route: 065
     Dates: start: 20150508, end: 20150526
  17. CERTICAN [Suspect]
     Active Substance: EVEROLIMUS
     Dosage: 8 MG, QD (3-0-5)
     Route: 048
     Dates: start: 20150426, end: 20150426
  18. CERTICAN [Suspect]
     Active Substance: EVEROLIMUS
     Dosage: 16 MG, QD (8-0-8)
     Route: 048
     Dates: start: 20150510, end: 20150510
  19. HEPARIN [Suspect]
     Active Substance: HEPARIN SODIUM
     Indication: THROMBOSIS PROPHYLAXIS
     Dosage: 5000 IE, 3 TIMES A DAY
     Route: 065
     Dates: start: 20150422, end: 20150513
  20. AMLODIPINE [Concomitant]
     Active Substance: AMLODIPINE BESYLATE
     Indication: HYPERTENSION
     Dosage: UNK
     Route: 065
     Dates: start: 20120928
  21. GABAPENTIN. [Concomitant]
     Active Substance: GABAPENTIN
     Indication: HYPOAESTHESIA
     Dosage: UNK
     Route: 065
     Dates: start: 20140505
  22. URBASON [Concomitant]
     Active Substance: METHYLPREDNISOLONE
     Indication: PRODUCT USED FOR UNKNOWN INDICATION
     Dosage: 500 MG, QD
     Route: 065
     Dates: start: 20150512
  23. CERTICAN [Suspect]
     Active Substance: EVEROLIMUS
     Dosage: 3 MG, BID
     Route: 048
     Dates: start: 20150602, end: 20150604
  24. TACROLIMUS. [Suspect]
     Active Substance: TACROLIMUS
     Dosage: 6 MG, QD (2-0-4)
     Route: 048
     Dates: start: 20150424, end: 20150424
  25. TACROLIMUS. [Suspect]
     Active Substance: TACROLIMUS
     Dosage: 15 MG, QD (7-0-8)
     Route: 048
     Dates: start: 20150428, end: 20150428
  26. URBASON SOLUBILE FORTE [Concomitant]
     Dosage: 125 MG, QD
     Route: 065
     Dates: start: 20150424
  27. CANDESARTAN [Concomitant]
     Active Substance: CANDESARTAN
     Indication: HYPERTENSION
     Dosage: UNK
     Route: 065
     Dates: start: 20150423
  28. COTRIM FORTE-RATIOPHARM [Concomitant]
     Active Substance: SULFAMETHOXAZOLE\TRIMETHOPRIM
     Indication: PROPHYLAXIS
     Dosage: UNK
     Route: 065
     Dates: start: 20150423
  29. MADOPAR [Concomitant]
     Active Substance: BENSERAZIDE HYDROCHLORIDE\LEVODOPA
     Indication: RESTLESS LEGS SYNDROME
     Dosage: UNK
     Route: 065
     Dates: start: 20150428
  30. CIPROBAY [Concomitant]
     Active Substance: CIPROFLOXACIN
     Indication: EPIDIDYMITIS
     Dosage: UNK
     Route: 065
     Dates: start: 20150515
  31. NEPHROTRANS [Concomitant]
     Active Substance: SODIUM BICARBONATE
     Indication: ACIDOSIS
     Dosage: UNK
     Route: 065
     Dates: start: 20150513
  32. CERTICAN [Suspect]
     Active Substance: EVEROLIMUS
     Dosage: 16 MG, QD (8-0-8)
     Route: 048
     Dates: start: 20150502, end: 20150503
  33. CERTICAN [Suspect]
     Active Substance: EVEROLIMUS
     Dosage: 8 MG, QD
     Route: 048
     Dates: start: 20150515, end: 20150531
  34. TACROLIMUS. [Suspect]
     Active Substance: TACROLIMUS
     Indication: RENAL TRANSPLANT
     Dosage: 4 MG, QD (2-0-2)
     Route: 048
     Dates: start: 20150423, end: 20150423
  35. TACROLIMUS. [Suspect]
     Active Substance: TACROLIMUS
     Dosage: 18 MG, QD (10-0-8)
     Route: 048
     Dates: start: 20150503, end: 20150503
  36. TACROLIMUS. [Suspect]
     Active Substance: TACROLIMUS
     Dosage: 15 MG, QD (8-0-7)
     Route: 048
     Dates: start: 20150506, end: 20150506
  37. TACROLIMUS. [Suspect]
     Active Substance: TACROLIMUS
     Dosage: 12 MG, QD (5-0-7)
     Route: 048
     Dates: start: 20150516, end: 20150516
  38. TACROLIMUS. [Suspect]
     Active Substance: TACROLIMUS
     Dosage: 10 MG, QD (5-0-5)
     Route: 048
     Dates: start: 20150522, end: 20150528
  39. URBASON SOLUBILE FORTE [Concomitant]
     Indication: RENAL TRANSPLANT
     Dosage: 500 MG, QD
     Route: 065
     Dates: start: 20150422, end: 20150422
  40. MIMPARA [Concomitant]
     Active Substance: CINACALCET HYDROCHLORIDE
     Indication: HYPERCALCAEMIA
     Dosage: UNK
     Route: 065
     Dates: start: 20150422
  41. AMPHO MORONAL [Concomitant]
     Active Substance: AMPHOTERICIN B
     Indication: PROPHYLAXIS
     Dosage: UNK
     Route: 065
     Dates: start: 20150503
  42. CERTICAN [Suspect]
     Active Substance: EVEROLIMUS
     Dosage: 5 MG, QD (2-0-3)
     Route: 048
     Dates: start: 20150425, end: 20150425
  43. CERTICAN [Suspect]
     Active Substance: EVEROLIMUS
     Dosage: 18 MG, QD (9-0-9)
     Route: 048
     Dates: start: 20150504, end: 20150509
  44. CERTICAN [Suspect]
     Active Substance: EVEROLIMUS
     Dosage: 7.5 MG (3-0-2.5)
     Route: 048
     Dates: start: 20150605, end: 20150605
  45. TACROLIMUS. [Suspect]
     Active Substance: TACROLIMUS
     Dosage: 15 MG, QD (8-0-7)
     Route: 048
     Dates: start: 20150506, end: 20150506
  46. BASILIXIMAB [Concomitant]
     Active Substance: BASILIXIMAB
     Indication: RENAL TRANSPLANT
     Dosage: 20 MG, ONCE/SINGLE
     Route: 042
     Dates: start: 20150422
  47. BISOPROLOL [Concomitant]
     Active Substance: BISOPROLOL
     Indication: HYPERTENSION
     Dosage: UNK
     Route: 065
     Dates: start: 20120928
  48. CERTICAN [Suspect]
     Active Substance: EVEROLIMUS
     Dosage: UNK
     Route: 048
     Dates: start: 20150513, end: 20150513
  49. TACROLIMUS. [Suspect]
     Active Substance: TACROLIMUS
     Dosage: 9 MG, QD (4-0-5)
     Route: 048
     Dates: start: 20150427, end: 20150427
  50. TACROLIMUS. [Suspect]
     Active Substance: TACROLIMUS
     Dosage: 22 MG, QD (12-0-10)
     Route: 048
     Dates: start: 20150502, end: 20150502
  51. TACROLIMUS. [Suspect]
     Active Substance: TACROLIMUS
     Dosage: 8 MG, QD (4-0-4)
     Route: 048
     Dates: start: 20150512, end: 20150513
  52. TACROLIMUS. [Suspect]
     Active Substance: TACROLIMUS
     Dosage: 14 MG, QD (7-0-7)
     Route: 048
     Dates: start: 20150517, end: 20150520
  53. TACROLIMUS. [Suspect]
     Active Substance: TACROLIMUS
     Dosage: 7 MG, QD (3.5-0-3.5)
     Route: 048
     Dates: start: 20150602, end: 20150604
  54. TACROLIMUS. [Suspect]
     Active Substance: TACROLIMUS
     Dosage: 6 MG, QD (3.-0-3)
     Route: 048
     Dates: start: 20150606
  55. PREDNISOLON [Concomitant]
     Active Substance: PREDNISOLONE
     Dosage: 40 MG, QD
     Route: 065
     Dates: start: 20150428, end: 20150501
  56. PREDNISOLON [Concomitant]
     Active Substance: PREDNISOLONE
     Dosage: 7.5 MG, QD
     Route: 065
     Dates: start: 20150527
  57. CITALOPRAM [Concomitant]
     Active Substance: CITALOPRAM HYDROBROMIDE
     Indication: PERSONALITY DISORDER
     Dosage: UNK
     Route: 065
     Dates: start: 20120928
  58. DOXAZOCIN [Concomitant]
     Active Substance: DOXAZOSIN MESYLATE
     Indication: HYPERTENSION
     Dosage: UNK
     Route: 065
     Dates: start: 20120928
  59. HEPARIN-RATIOPHARM [Concomitant]
     Indication: PROPHYLAXIS
     Dosage: UNK
     Route: 065
     Dates: start: 20150423
  60. LACTULOSE HEXAL [Concomitant]
     Indication: ILEUS PARALYTIC
     Dosage: UNK
     Route: 065
     Dates: start: 20150426
  61. CERTICAN [Suspect]
     Active Substance: EVEROLIMUS
     Dosage: 3.5 MG, QD (1.5-0-2)
     Route: 048
     Dates: start: 20150424, end: 20150424
  62. CERTICAN [Suspect]
     Active Substance: EVEROLIMUS
     Dosage: 11 MG, QD (5-0-6)
     Route: 048
     Dates: start: 20150427, end: 20150427
  63. CERTICAN [Suspect]
     Active Substance: EVEROLIMUS
     Dosage: 8 MG, QD (4-0-0)
     Route: 048
     Dates: start: 20150512, end: 20150512
  64. TACROLIMUS. [Suspect]
     Active Substance: TACROLIMUS
     Dosage: 8 MG, QD (4-0-4)
     Route: 048
     Dates: start: 20150425, end: 20150426
  65. TACROLIMUS. [Suspect]
     Active Substance: TACROLIMUS
     Dosage: 16 MG, QD (8-0-8)
     Route: 048
     Dates: start: 20150504, end: 20150505
  66. TACROLIMUS. [Suspect]
     Active Substance: TACROLIMUS
     Dosage: 8 MG, QD (3-0-5)
     Route: 048
     Dates: start: 20150515, end: 20150515
  67. TACROLIMUS. [Suspect]
     Active Substance: TACROLIMUS
     Dosage: 6.5 MG, QD (3.5-0-3)
     Route: 048
     Dates: start: 20150605, end: 20150605
  68. HEPARIN [Suspect]
     Active Substance: HEPARIN SODIUM
     Dosage: 5000 IE, 3 TIMES A DAY
     Route: 065
     Dates: end: 20150522
  69. PANTOPRAZOL [Concomitant]
     Active Substance: PANTOPRAZOLE SODIUM
     Indication: PROPHYLAXIS
     Dosage: UNK
     Route: 065
     Dates: start: 20150423
  70. ERYTHROPOIETIN [Concomitant]
     Active Substance: ERYTHROPOIETIN
     Indication: NEPHROGENIC ANAEMIA
     Dosage: UNK
     Route: 065
     Dates: start: 20150501

REACTIONS (5)
  - Kidney transplant rejection [Recovered/Resolved]
  - Complications of transplanted kidney [Recovered/Resolved with Sequelae]
  - Renal artery stenosis [Recovered/Resolved]
  - Post procedural haematoma [Recovered/Resolved]
  - Hyperkalaemia [Recovered/Resolved]

NARRATIVE: CASE EVENT DATE: 20150422
